FAERS Safety Report 10482416 (Version 2)
Quarter: 2015Q1

REPORT INFORMATION
  Report Type: Spontaneous
  Country: US (occurrence: US)
  Receive Date: 20140929
  Receipt Date: 20150112
  Transmission Date: 20150720
  Serious: Yes (Hospitalization, Other)
  Sender: FDA-Public Use
  Company Number: US-BAYER-2014-143496

PATIENT
  Age: 23 Year
  Sex: Female

DRUGS (1)
  1. MIRENA [Suspect]
     Active Substance: LEVONORGESTREL
     Indication: CONTRACEPTION
     Dosage: 20 MCG/24HR, CONT
     Route: 015
     Dates: start: 20091027, end: 20120915

REACTIONS (13)
  - Back pain [None]
  - Abdominal pain lower [None]
  - Genital haemorrhage [None]
  - Dyspareunia [None]
  - Pain [None]
  - Uterine perforation [None]
  - Drug ineffective [None]
  - Pelvic inflammatory disease [None]
  - Depression [None]
  - Injury [None]
  - Ectopic pregnancy with contraceptive device [None]
  - Emotional distress [None]
  - Headache [None]

NARRATIVE: CASE EVENT DATE: 20120910
